FAERS Safety Report 10380976 (Version 2)
Quarter: 2014Q3

REPORT INFORMATION
  Report Type: Spontaneous
  Country: US (occurrence: US)
  Receive Date: 20140813
  Receipt Date: 20140829
  Transmission Date: 20150326
  Serious: Yes (Death, Hospitalization)
  Sender: FDA-Public Use
  Company Number: US-JNJFOC-20140810546

PATIENT
  Age: 56 Year
  Sex: Female
  Weight: 73 kg

DRUGS (11)
  1. WELLBUTRIN [Concomitant]
     Active Substance: BUPROPION HYDROCHLORIDE
     Dates: start: 20130225
  2. SOMA [Concomitant]
     Active Substance: CARISOPRODOL
     Dates: start: 20130321
  3. HYDROCODONE/ACETAMINOPHEN [Concomitant]
     Active Substance: ACETAMINOPHEN\HYDROCODONE
     Indication: PAIN
     Dosage: 50 MG- 500 MG TWO PRN
     Route: 048
     Dates: start: 20130321
  4. PANTOPRAZOLE [Concomitant]
     Active Substance: PANTOPRAZOLE SODIUM
     Route: 048
     Dates: start: 20140421
  5. IMBRUVICA [Suspect]
     Active Substance: IBRUTINIB
     Indication: NODAL MARGINAL ZONE B-CELL LYMPHOMA REFRACTORY
     Route: 065
     Dates: start: 20140306, end: 20140729
  6. IMBRUVICA [Suspect]
     Active Substance: IBRUTINIB
     Indication: NODAL MARGINAL ZONE B-CELL LYMPHOMA REFRACTORY
     Route: 065
     Dates: start: 20140213, end: 20140227
  7. SERTRALINE [Concomitant]
     Active Substance: SERTRALINE HYDROCHLORIDE
     Route: 048
     Dates: start: 20130815
  8. XANAX [Concomitant]
     Active Substance: ALPRAZOLAM
     Route: 065
     Dates: start: 20130225
  9. IMBRUVICA [Suspect]
     Active Substance: IBRUTINIB
     Indication: NODAL MARGINAL ZONE B-CELL LYMPHOMA REFRACTORY
     Route: 065
     Dates: start: 20140116, end: 2014
  10. ACYCLOVIR. [Concomitant]
     Active Substance: ACYCLOVIR
  11. ABILIFY [Concomitant]
     Active Substance: ARIPIPRAZOLE
     Dosage: QHS
     Route: 048
     Dates: start: 20130604

REACTIONS (4)
  - Pneumonia [Unknown]
  - Sepsis [Not Recovered/Not Resolved]
  - Leukopenia [Not Recovered/Not Resolved]
  - Pulmonary embolism [Fatal]

NARRATIVE: CASE EVENT DATE: 20140213
